FAERS Safety Report 14943022 (Version 1)
Quarter: 2018Q2

REPORT INFORMATION
  Report Type: Spontaneous
  Country: US (occurrence: US)
  Receive Date: 20180528
  Receipt Date: 20180528
  Transmission Date: 20180711
  Serious: No
  Sender: FDA-Public Use
  Company Number: US-ASTRAZENECA-2018SE65936

PATIENT
  Age: 22877 Day
  Sex: Male
  Weight: 82.1 kg

DRUGS (8)
  1. NEXIUM [Suspect]
     Active Substance: ESOMEPRAZOLE MAGNESIUM
     Indication: ULCER
     Dosage: GENERIC40.0MG UNKNOWN
     Route: 048
     Dates: start: 20180510, end: 20180514
  2. NEXIUM [Suspect]
     Active Substance: ESOMEPRAZOLE MAGNESIUM
     Indication: MOUTH HAEMORRHAGE
     Dosage: GENERIC40.0MG UNKNOWN
     Route: 048
     Dates: start: 20180510, end: 20180514
  3. NEXIUM [Suspect]
     Active Substance: ESOMEPRAZOLE MAGNESIUM
     Indication: MOUTH HAEMORRHAGE
     Dosage: GENERIC40.0MG UNKNOWN
     Route: 048
     Dates: start: 20180510
  4. NEXIUM 24HR [Suspect]
     Active Substance: ESOMEPRAZOLE MAGNESIUM
     Indication: ULCER
     Route: 048
     Dates: start: 20180513
  5. NEXIUM [Suspect]
     Active Substance: ESOMEPRAZOLE MAGNESIUM
     Indication: MOUTH HAEMORRHAGE
     Dosage: UNKNOWN
     Route: 048
     Dates: start: 1990
  6. NEXIUM [Suspect]
     Active Substance: ESOMEPRAZOLE MAGNESIUM
     Indication: ULCER
     Dosage: GENERIC40.0MG UNKNOWN
     Route: 048
     Dates: start: 20180510
  7. NEXIUM [Suspect]
     Active Substance: ESOMEPRAZOLE MAGNESIUM
     Indication: ULCER
     Dosage: UNKNOWN
     Route: 048
     Dates: start: 1990
  8. METFORMIN [Concomitant]
     Active Substance: METFORMIN HYDROCHLORIDE
     Indication: DIABETES MELLITUS

REACTIONS (11)
  - Amnesia [Unknown]
  - Drug ineffective [Unknown]
  - Diabetes mellitus [Unknown]
  - Malaise [Unknown]
  - Flatulence [Recovered/Resolved]
  - Ulcer [Unknown]
  - Oral pain [Unknown]
  - Teeth brittle [Unknown]
  - Headache [Unknown]
  - Product use in unapproved indication [Recovered/Resolved]
  - Off label use [Recovered/Resolved]

NARRATIVE: CASE EVENT DATE: 20180510
